FAERS Safety Report 4294938-6 (Version None)
Quarter: 2004Q1

REPORT INFORMATION
  Report Type: 
  Country: None (occurrence: None)
  Receive Date: 20040216
  Receipt Date: 20030307
  Transmission Date: 20041129
  Serious: No
  Sender: FDA-Public Use
  Company Number: US-GLAXOSMITHKLINE-A0399414A

PATIENT
  Age: 11 Year
  Sex: Female

DRUGS (2)
  1. LAMICTAL [Suspect]
     Dosage: 100MG TWICE PER DAY
     Route: 048
     Dates: start: 20020901
  2. NO CONCURRENT MEDICATIONS [Concomitant]

REACTIONS (3)
  - AMNESIA [None]
  - CONVULSION [None]
  - DISTURBANCE IN ATTENTION [None]
